FAERS Safety Report 12609820 (Version 1)
Quarter: 2016Q3

REPORT INFORMATION
  Report Type: Spontaneous
  Country: US (occurrence: None)
  Receive Date: 20160729
  Receipt Date: 20160729
  Transmission Date: 20161109
  Serious: No
  Sender: FDA-Public Use
  Company Number: None

PATIENT
  Age: 11 Year
  Sex: Female

DRUGS (1)
  1. ZIPRASIDONE 20MG MYLAN [Suspect]
     Active Substance: ZIPRASIDONE
     Indication: MOOD SWINGS
     Route: 048
     Dates: start: 20160528, end: 20160615

REACTIONS (2)
  - Urinary incontinence [None]
  - Agitation [None]

NARRATIVE: CASE EVENT DATE: 20160615
